FAERS Safety Report 7211282-5 (Version None)
Quarter: 2011Q1

REPORT INFORMATION
  Report Type: 
  Country: None (occurrence: None)
  Receive Date: 20110105
  Receipt Date: 20101118
  Transmission Date: 20110831
  Serious: No
  Sender: FDA-Public Use
  Company Number: US-JNJFOC-20101106858

PATIENT
  Sex: Female
  Weight: 122.47 kg

DRUGS (3)
  1. COGENTIN [Concomitant]
     Indication: ADVERSE DRUG REACTION
     Route: 048
  2. LITHIUM [Concomitant]
     Indication: SCHIZOAFFECTIVE DISORDER
     Route: 048
  3. INVEGA SUSTENNA [Suspect]
     Indication: SCHIZOAFFECTIVE DISORDER
     Route: 030

REACTIONS (1)
  - INJECTION SITE NODULE [None]
